FAERS Safety Report 11305863 (Version 1)
Quarter: 2015Q3

REPORT INFORMATION
  Report Type: Spontaneous
  Country: DE (occurrence: DE)
  Receive Date: 20150723
  Receipt Date: 20150723
  Transmission Date: 20151125
  Serious: Yes (Hospitalization)
  Sender: FDA-Public Use
  Company Number: GXKR2015DE003339

PATIENT
  Sex: Male

DRUGS (1)
  1. TRIAMHEXAL [Suspect]
     Active Substance: TRIAMCINOLONE
     Indication: PRODUCT USED FOR UNKNOWN INDICATION
     Dosage: 6 X 40 MG WITHIN 6 WEEKS
     Route: 065
     Dates: start: 20150616

REACTIONS (27)
  - Dyspnoea exertional [Unknown]
  - General physical health deterioration [Unknown]
  - Performance status decreased [Unknown]
  - Cushing^s syndrome [Unknown]
  - Muscle spasms [Unknown]
  - Dry skin [Unknown]
  - Skin exfoliation [Unknown]
  - Skin fissures [Unknown]
  - Fungal oesophagitis [Unknown]
  - Inappropriate schedule of drug administration [Unknown]
  - Weight decreased [Unknown]
  - Sciatica [Unknown]
  - Pain in extremity [Unknown]
  - Local swelling [Unknown]
  - Gastritis [Unknown]
  - Dysgeusia [Unknown]
  - Muscle spasticity [Unknown]
  - Impaired healing [Unknown]
  - Dysphonia [Unknown]
  - Night sweats [Unknown]
  - Cortisol free urine decreased [Unknown]
  - Gait disturbance [Unknown]
  - Muscular weakness [Unknown]
  - Muscle atrophy [Unknown]
  - Paraesthesia [Unknown]
  - Gastric ulcer [Unknown]
  - Pruritus [Unknown]
